FAERS Safety Report 6357680-3 (Version None)
Quarter: 2009Q3

REPORT INFORMATION
  Report Type: 
  Country: None (occurrence: None)
  Receive Date: 20090916
  Receipt Date: 20090908
  Transmission Date: 20100115
  Serious: Yes (Hospitalization)
  Sender: FDA-Public Use
  Company Number: JP-BRISTOL-MYERS SQUIBB COMPANY-14594790

PATIENT
  Age: 50 Year
  Sex: Male
  Weight: 66 kg

DRUGS (5)
  1. ERBITUX [Suspect]
     Indication: RECTAL CANCER
     Dosage: STARTED AS 400MG/M2 ON 11DEC08,250 MG/M2 1IN1 WK IV FROM 18DEC08-19FEB09(63D).RESTARTED ON 04JUN09
     Route: 042
     Dates: start: 20081211, end: 20081211
  2. IRINOTECAN HCL [Concomitant]
     Indication: RECTAL CANCER
     Route: 042
     Dates: start: 20081211
  3. DIPHENHYDRAMINE HCL [Concomitant]
     Indication: PREMEDICATION
     Dosage: TABS
     Route: 048
     Dates: start: 20081211, end: 20090219
  4. KYTRIL [Concomitant]
     Indication: ANTIEMETIC SUPPORTIVE CARE
     Route: 042
     Dates: start: 20081211
  5. DECADRON [Concomitant]
     Route: 042
     Dates: start: 20081211

REACTIONS (3)
  - ARTHRITIS [None]
  - RENAL IMPAIRMENT [None]
  - SEPSIS [None]
